FAERS Safety Report 24541445 (Version 2)
Quarter: 2025Q3

REPORT INFORMATION
  Report Type: Spontaneous
  Country: EU (occurrence: EU)
  Receive Date: 20241023
  Receipt Date: 20250809
  Transmission Date: 20251020
  Serious: Yes (Other)
  Sender: ALEXION PHARMACEUTICALS
  Company Number: None

PATIENT
  Age: 65 Year
  Sex: Female

DRUGS (2)
  1. TAGRISSO [Suspect]
     Active Substance: OSIMERTINIB
     Indication: Non-small cell lung cancer
  2. XGEVA [Concomitant]
     Active Substance: DENOSUMAB
     Dosage: 1 DOSAGE FORM, Q4W
     Route: 065
     Dates: start: 20210615

REACTIONS (3)
  - Vulvovaginal mycotic infection [Recovered/Resolved]
  - Folliculitis [Not Recovered/Not Resolved]
  - Erosive pustular dermatosis [Not Recovered/Not Resolved]

NARRATIVE: CASE EVENT DATE: 20231201
